FAERS Safety Report 11302374 (Version 1)
Quarter: 2015Q3

REPORT INFORMATION
  Report Type: Spontaneous
  Country: US (occurrence: None)
  Receive Date: 20150723
  Receipt Date: 20150723
  Transmission Date: 20151125
  Serious: Yes (Hospitalization)
  Sender: FDA-Public Use
  Company Number: None

PATIENT
  Age: 45 Year
  Sex: Female
  Weight: 89 kg

DRUGS (1)
  1. DOXIL [Suspect]
     Active Substance: DOXORUBICIN HYDROCHLORIDE
     Dates: end: 20150706

REACTIONS (4)
  - Pyelonephritis [None]
  - Acute kidney injury [None]
  - Klebsiella test positive [None]
  - Bacteraemia [None]

NARRATIVE: CASE EVENT DATE: 20150711
